FAERS Safety Report 21070906 (Version 3)
Quarter: 2022Q3

REPORT INFORMATION
  Report Type: Report from Study
  Country: MX (occurrence: MX)
  Receive Date: 20220712
  Receipt Date: 20220903
  Transmission Date: 20221026
  Serious: Yes (Other)
  Sender: FDA-Public Use
  Company Number: MX-NOVARTISPH-NVSC2022MX089760

PATIENT
  Sex: Male
  Weight: 72 kg

DRUGS (3)
  1. DIOVAN [Suspect]
     Active Substance: VALSARTAN
     Indication: Hypertension
     Dosage: 0.5 DOSAGE FORM, QD
     Route: 048
     Dates: start: 2021
  2. DIOVAN [Suspect]
     Active Substance: VALSARTAN
     Dosage: 0.5 DOSAGE FORM, BID  (IN THE MORNING AND AT NIGHT)
     Route: 048
     Dates: start: 2021
  3. DIOVAN [Suspect]
     Active Substance: VALSARTAN
     Dosage: 1 DOSAGE FORM, QD, BY MOUTH
     Route: 048
     Dates: start: 202111

REACTIONS (8)
  - Chest injury [Unknown]
  - Blood pressure increased [Unknown]
  - Blood pressure fluctuation [Recovered/Resolved]
  - Irritability [Unknown]
  - Feeling abnormal [Unknown]
  - Illness [Not Recovered/Not Resolved]
  - Product prescribing error [Not Recovered/Not Resolved]
  - Wrong technique in product usage process [Unknown]

NARRATIVE: CASE EVENT DATE: 20210101
